FAERS Safety Report 21001422 (Version 1)
Quarter: 2022Q2

REPORT INFORMATION
  Report Type: Report from Study
  Country: US (occurrence: US)
  Receive Date: 20220624
  Receipt Date: 20220624
  Transmission Date: 20220720
  Serious: Yes (Other)
  Sender: FDA-Public Use
  Company Number: US-GILEAD-2022-0586206

PATIENT
  Age: 52 Year
  Sex: Female

DRUGS (14)
  1. AZTREONAM LYSINE [Suspect]
     Active Substance: AZTREONAM LYSINE
     Indication: Cystic fibrosis
     Dosage: 75 MG, TID FOR 28 DAYS ON DURING CF EXACERBATION ONLY
     Route: 055
     Dates: start: 202111
  2. AZTREONAM LYSINE [Suspect]
     Active Substance: AZTREONAM LYSINE
     Indication: Pseudomonas infection
  3. TRIKAFTA [Suspect]
     Active Substance: ELEXACAFTOR\IVACAFTOR\TEZACAFTOR
     Indication: Cystic fibrosis
     Dosage: TAKE 2 ORANGE TABLETS IN THE MORNING AND 1 BLUE TABLET IN THE EVENING APPROXIMATELY 12 HOURS APART.
     Route: 048
     Dates: start: 2020
  4. ALBUTEROL SULFATE [Concomitant]
     Active Substance: ALBUTEROL SULFATE
     Dosage: 0.63MG/3ML VIAL-NEB, 1 BID
     Dates: start: 20220609
  5. ACETYLCYSTEINE [Concomitant]
     Active Substance: ACETYLCYSTEINE
     Dosage: 100 MG/ML VIAL BID
     Dates: start: 20220609
  6. AZITHROMYCIN [Concomitant]
     Active Substance: AZITHROMYCIN
     Dosage: 250 MG TABLET DAILY
     Dates: start: 20220609
  7. FISH OIL [Concomitant]
     Active Substance: FISH OIL
     Dosage: 100-160 MG CAPSULE DAILY
     Dates: start: 20220609
  8. VITAMIN E [Concomitant]
     Active Substance: .ALPHA.-TOCOPHEROL
     Dosage: 1000 UNIT CAPSULE DAILY
     Dates: start: 20220609
  9. CALCIUM [Concomitant]
     Active Substance: CALCIUM
     Dosage: 600MG DAILY
     Dates: start: 20220609
  10. ADEKS [Concomitant]
     Dosage: ADEK GUMMIES PLUS ZINC 2400-18.75 TAB CHEW DAILY
     Dates: start: 20220609
  11. ZENPEP [Concomitant]
     Active Substance: PANCRELIPASE AMYLASE\PANCRELIPASE LIPASE\PANCRELIPASE PROTEASE
     Dosage: 10-32-42K CAPSULE DR AS DIRECTED
     Dates: start: 20220609
  12. RHINOCORT [Concomitant]
     Active Substance: BUDESONIDE
     Dosage: ALLERGY SPRAY AS NEEDED
     Dates: start: 20220609
  13. PULMOZYME [Concomitant]
     Active Substance: DORNASE ALFA
     Dosage: INHALE 1 AMPULE (2.5 MG) VIA NEBULIZER TWICE A DAY
     Dates: start: 20220425
  14. VITAMINS\ZINC [Concomitant]
     Active Substance: VITAMINS\ZINC
     Dosage: MVW COMPLETE FORMLTN P 40B-15 MG CAPSULE DR
     Dates: start: 20200206

REACTIONS (2)
  - Cystic fibrosis [Unknown]
  - Off label use [Unknown]

NARRATIVE: CASE EVENT DATE: 20211101
